FAERS Safety Report 7917380-2 (Version None)
Quarter: 2011Q4

REPORT INFORMATION
  Report Type: 
  Country: None (occurrence: None)
  Receive Date: 20111116
  Receipt Date: 20111109
  Transmission Date: 20120403
  Serious: Yes (Hospitalization, Other)
  Sender: FDA-Public Use
  Company Number: PHHY2011CA87469

PATIENT
  Sex: Male

DRUGS (6)
  1. LEUCOVORIN CALCIUM [Concomitant]
     Route: 065
  2. FLUOROURACIL [Concomitant]
     Route: 065
  3. FOLFOX-6 [Concomitant]
     Route: 065
  4. SANDOSTATIN [Suspect]
     Indication: SMALL INTESTINE CARCINOMA
     Dosage: 100 UG, TID
     Route: 058
  5. AVASTIN [Concomitant]
     Route: 065
  6. SANDOSTATIN LAR [Suspect]
     Indication: SMALL INTESTINE CARCINOMA
     Dosage: 20 MG, EVERY 4 WEEKS
     Route: 030
     Dates: start: 20100722

REACTIONS (7)
  - VOMITING [None]
  - MALAISE [None]
  - SMALL INTESTINAL OBSTRUCTION [None]
  - NEOPLASM RECURRENCE [None]
  - SWELLING [None]
  - DECREASED APPETITE [None]
  - GENERAL PHYSICAL HEALTH DETERIORATION [None]
